FAERS Safety Report 18397127 (Version 1)
Quarter: 2020Q4

REPORT INFORMATION
  Report Type: Spontaneous
  Country: US (occurrence: US)
  Receive Date: 20201016
  Receipt Date: 20201016
  Transmission Date: 20210114
  Serious: Yes (Death)
  Sender: FDA-Public Use
  Company Number: None

PATIENT
  Age: 71 Year
  Sex: Male

DRUGS (11)
  1. METHADONE [Concomitant]
     Active Substance: METHADONE HYDROCHLORIDE
  2. MORPHINE SUL [Concomitant]
     Active Substance: MORPHINE SULFATE
  3. HYDROCO/APAP [Concomitant]
     Active Substance: ACETAMINOPHEN\HYDROCODONE
  4. CAPECITABINE. [Suspect]
     Active Substance: CAPECITABINE
     Indication: NEOPLASM MALIGNANT
     Route: 048
     Dates: start: 20200811, end: 20201011
  5. LORAZEPAM. [Concomitant]
     Active Substance: LORAZEPAM
  6. GLIPIZIDE. [Concomitant]
     Active Substance: GLIPIZIDE
  7. ATORVASTATIN [Concomitant]
     Active Substance: ATORVASTATIN
  8. ALOGLIPTIN. [Concomitant]
     Active Substance: ALOGLIPTIN
  9. AMOX/K CLAV [Concomitant]
     Active Substance: AMOXICILLIN\CLAVULANATE POTASSIUM
  10. GLIPIZIDE ER [Concomitant]
     Active Substance: GLIPIZIDE
  11. DULOXETINE. [Concomitant]
     Active Substance: DULOXETINE

REACTIONS (1)
  - Death [None]

NARRATIVE: CASE EVENT DATE: 20201011
